FAERS Safety Report 8013241-1 (Version None)
Quarter: 2011Q4

REPORT INFORMATION
  Report Type: 
  Country: None (occurrence: None)
  Receive Date: 20111229
  Receipt Date: 20111228
  Transmission Date: 20120403
  Serious: Yes (Life-Threatening)
  Sender: FDA-Public Use
  Company Number: IT-SANOFI-AVENTIS-2011SA085111

PATIENT
  Age: 14 Year
  Sex: Male

DRUGS (8)
  1. ALLOPURINOL [Concomitant]
     Route: 065
  2. PREDNISONE TAB [Concomitant]
     Route: 065
  3. ACETAMINOPHEN [Concomitant]
     Route: 065
  4. AUGMENTIN [Concomitant]
     Route: 065
  5. RIFADIN [Suspect]
     Route: 048
     Dates: start: 20111027, end: 20111124
  6. ETHAMBUTOL HYDROCHLORIDE [Suspect]
     Route: 048
     Dates: start: 20111027, end: 20111124
  7. ISONIAZID [Suspect]
     Route: 048
     Dates: start: 20111027, end: 20111124
  8. PYRAZINAMIDE [Suspect]
     Route: 048
     Dates: start: 20111027, end: 20111124

REACTIONS (1)
  - ACUTE HEPATIC FAILURE [None]
